FAERS Safety Report 20100465 (Version 3)
Quarter: 2025Q3

REPORT INFORMATION
  Report Type: Report from Study
  Country: CA (occurrence: CA)
  Receive Date: 20211123
  Receipt Date: 20250819
  Transmission Date: 20251021
  Serious: Yes (Hospitalization, Other)
  Sender: TAKEDA
  Company Number: CA-TAKEDA-2017TUS021511

PATIENT
  Sex: Male

DRUGS (5)
  1. VEDOLIZUMAB [Suspect]
     Active Substance: VEDOLIZUMAB
     Indication: Colitis ulcerative
  2. VEDOLIZUMAB [Suspect]
     Active Substance: VEDOLIZUMAB
     Dosage: 300 MILLIGRAM, Q4WEEKS
     Dates: start: 20160218
  3. VEDOLIZUMAB [Suspect]
     Active Substance: VEDOLIZUMAB
     Dosage: 300 MILLIGRAM, Q4WEEKS
  4. METHOTREXATE [Concomitant]
     Active Substance: METHOTREXATE
  5. URSODIOL [Concomitant]
     Active Substance: URSODIOL

REACTIONS (4)
  - Volvulus of small bowel [Recovering/Resolving]
  - Gastrointestinal disorder [Unknown]
  - Colitis ulcerative [Not Recovered/Not Resolved]
  - Viral infection [Unknown]
